FAERS Safety Report 16011439 (Version 4)
Quarter: 2019Q2

REPORT INFORMATION
  Report Type: Spontaneous
  Country: GB (occurrence: GB)
  Receive Date: 20190227
  Receipt Date: 20190402
  Transmission Date: 20190711
  Serious: Yes (Death, Hospitalization, Other)
  Sender: FDA-Public Use
  Company Number: GB-SA-2019SA018193

PATIENT
  Age: 36 Year
  Sex: Male

DRUGS (2)
  1. LEMTRADA [Suspect]
     Active Substance: ALEMTUZUMAB
     Dosage: 60 MG, UNK
     Route: 041
     Dates: start: 20150910
  2. LEMTRADA [Suspect]
     Active Substance: ALEMTUZUMAB
     Indication: MULTIPLE SCLEROSIS
     Dosage: 36 MG, UNK
     Route: 041
     Dates: start: 201609, end: 20160925

REACTIONS (3)
  - Chest pain [Fatal]
  - Cardiac failure acute [Fatal]
  - Myocarditis [Fatal]

NARRATIVE: CASE EVENT DATE: 201812
